FAERS Safety Report 11785323 (Version 1)
Quarter: 2015Q4

REPORT INFORMATION
  Report Type: Spontaneous
  Country: US (occurrence: US)
  Receive Date: 20151130
  Receipt Date: 20151130
  Transmission Date: 20160305
  Serious: Yes (Death, Hospitalization)
  Sender: FDA-Public Use
  Company Number: US-ASTELLAS-2015US044561

PATIENT
  Age: 74 Year
  Sex: Male

DRUGS (1)
  1. XTANDI [Suspect]
     Active Substance: ENZALUTAMIDE
     Indication: HORMONE-REFRACTORY PROSTATE CANCER
     Dosage: 2 DF (PILLS), ONCE DAILY
     Route: 065
     Dates: start: 2015

REACTIONS (4)
  - Underdose [Unknown]
  - Death [Fatal]
  - Pneumonia [Unknown]
  - Adverse event [Unknown]

NARRATIVE: CASE EVENT DATE: 20150706
